FAERS Safety Report 11464447 (Version 1)
Quarter: 2015Q3

REPORT INFORMATION
  Report Type: Spontaneous
  Country: US (occurrence: US)
  Receive Date: 20150831
  Receipt Date: 20150831
  Transmission Date: 20151125
  Serious: No
  Sender: FDA-Public Use
  Company Number: US-ELI_LILLY_AND_COMPANY-US201107002960

PATIENT
  Age: 55 Year
  Sex: Female

DRUGS (4)
  1. VITAMINS                           /90003601/ [Concomitant]
     Active Substance: VITAMINS
  2. CYMBALTA [Suspect]
     Active Substance: DULOXETINE HYDROCHLORIDE
     Indication: FIBROMYALGIA
     Dosage: 30 MG, QD
     Dates: start: 20110707
  3. BABY ASPIRIN [Concomitant]
     Active Substance: ASPIRIN
  4. REMERON                                 /USA/ [Concomitant]

REACTIONS (6)
  - Decreased appetite [Unknown]
  - Nausea [Unknown]
  - Dry mouth [Unknown]
  - Pain [Unknown]
  - Abdominal symptom [Unknown]
  - Headache [Unknown]

NARRATIVE: CASE EVENT DATE: 20110707
